FAERS Safety Report 15943217 (Version 3)
Quarter: 2019Q2

REPORT INFORMATION
  Report Type: Spontaneous
  Country: US (occurrence: US)
  Receive Date: 20190210
  Receipt Date: 20190404
  Transmission Date: 20190711
  Serious: Yes (Other)
  Sender: FDA-Public Use
  Company Number: US-ASTRAZENECA-2018SF64551

PATIENT
  Age: 29098 Day
  Sex: Female
  Weight: 75.6 kg

DRUGS (25)
  1. PREVACID [Suspect]
     Active Substance: LANSOPRAZOLE
     Indication: GASTROOESOPHAGEAL REFLUX DISEASE
     Route: 065
     Dates: start: 1997, end: 2013
  2. PRILOSEC [Suspect]
     Active Substance: OMEPRAZOLE MAGNESIUM
     Indication: GASTROOESOPHAGEAL REFLUX DISEASE
     Route: 048
     Dates: start: 1997, end: 2013
  3. DIFLORASONE [Concomitant]
     Active Substance: DIFLORASONE DIACETATE
  4. FLUOCINONIDE. [Concomitant]
     Active Substance: FLUOCINONIDE
  5. CARVEDILOL. [Concomitant]
     Active Substance: CARVEDILOL
  6. PRAVASTATIN. [Concomitant]
     Active Substance: PRAVASTATIN
  7. HYDROCHLOROTHIAZIDE. [Concomitant]
     Active Substance: HYDROCHLOROTHIAZIDE
     Route: 048
  8. HYDROXYZINE [Concomitant]
     Active Substance: HYDROXYZINE HYDROCHLORIDE
  9. HYDRALAZINE [Concomitant]
     Active Substance: HYDRALAZINE HYDROCHLORIDE
  10. PRILOSEC [Suspect]
     Active Substance: OMEPRAZOLE MAGNESIUM
     Indication: GASTROOESOPHAGEAL REFLUX DISEASE
     Dosage: GENERIC
     Route: 065
     Dates: start: 2011, end: 2015
  11. TRIAMCINOLONE [Concomitant]
     Active Substance: TRIAMCINOLONE
  12. DOXEPIN [Concomitant]
     Active Substance: DOXEPIN
  13. LOSARTAN. [Concomitant]
     Active Substance: LOSARTAN
  14. NEXIUM [Suspect]
     Active Substance: ESOMEPRAZOLE MAGNESIUM
     Indication: GASTROOESOPHAGEAL REFLUX DISEASE
     Route: 048
     Dates: start: 2001, end: 2015
  15. HYDROCHLOROTHIAZIDE. [Concomitant]
     Active Substance: HYDROCHLOROTHIAZIDE
  16. ZITHROMAX [Concomitant]
     Active Substance: AZITHROMYCIN DIHYDRATE
  17. LOSARTAN. [Concomitant]
     Active Substance: LOSARTAN
     Route: 048
  18. SERTRALINE HYDROCHLORIDE. [Concomitant]
     Active Substance: SERTRALINE HYDROCHLORIDE
     Route: 048
  19. TEMOVATE [Concomitant]
     Active Substance: CLOBETASOL PROPIONATE
  20. PREDNISONE. [Concomitant]
     Active Substance: PREDNISONE
  21. MULTIPLE VITAMINS [Concomitant]
     Active Substance: VITAMINS
     Route: 048
  22. CLOBETASOL [Concomitant]
     Active Substance: CLOBETASOL
  23. DESOXIMETASONE. [Concomitant]
     Active Substance: DESOXIMETASONE
  24. CARVEDILOL. [Concomitant]
     Active Substance: CARVEDILOL
     Route: 048
  25. NIZORAL [Concomitant]
     Active Substance: KETOCONAZOLE

REACTIONS (4)
  - Chronic kidney disease [Not Recovered/Not Resolved]
  - Renal failure [Not Recovered/Not Resolved]
  - Acute kidney injury [Unknown]
  - Nephropathy [Unknown]

NARRATIVE: CASE EVENT DATE: 20130913
